FAERS Safety Report 24601085 (Version 2)
Quarter: 2024Q4

REPORT INFORMATION
  Report Type: Spontaneous
  Country: US (occurrence: US)
  Receive Date: 20241110
  Receipt Date: 20241113
  Transmission Date: 20250115
  Serious: No
  Sender: NOVARTIS
  Company Number: US-002147023-NVSC2024US213686

PATIENT

DRUGS (1)
  1. COSENTYX [Suspect]
     Active Substance: SECUKINUMAB
     Indication: Product used for unknown indication
     Dosage: 300 MG, Q4W
     Route: 065

REACTIONS (10)
  - Rash [Unknown]
  - Pain [Unknown]
  - Rash pruritic [Unknown]
  - Paraesthesia [Unknown]
  - Nodule [Unknown]
  - Dysstasia [Unknown]
  - Carpal tunnel syndrome [Unknown]
  - Muscular weakness [Unknown]
  - Arthritis [Unknown]
  - Paraesthesia [Unknown]
